FAERS Safety Report 9516632 (Version 2)
Quarter: 2013Q3

REPORT INFORMATION
  Report Type: Spontaneous
  Country: JP (occurrence: JP)
  Receive Date: 20130911
  Receipt Date: 20130916
  Transmission Date: 20140515
  Serious: Yes (Other)
  Sender: FDA-Public Use
  Company Number: JP-GLAXOSMITHKLINE-B0914678A

PATIENT
  Age: 23 Year
  Sex: Female

DRUGS (5)
  1. LAMICTAL [Suspect]
     Indication: EPILEPSY
     Dosage: 25MG ALTERNATE DAYS
     Route: 048
     Dates: start: 20130729, end: 20130811
  2. LAMICTAL [Suspect]
     Indication: EPILEPSY
     Dosage: 25MG PER DAY
     Route: 048
     Dates: start: 20130812, end: 20130826
  3. LAMICTAL [Suspect]
     Indication: EPILEPSY
     Dosage: 25MG TWICE PER DAY
     Route: 048
     Dates: start: 20130827
  4. DEPAKENE [Concomitant]
     Indication: EPILEPSY
     Route: 048
     Dates: end: 20130811
  5. EXCEGRAN [Concomitant]
     Route: 048
     Dates: start: 20130812

REACTIONS (3)
  - Abortion induced [Unknown]
  - Ectopic pregnancy [Unknown]
  - Exposure during pregnancy [Unknown]
